FAERS Safety Report 6877585-9 (Version None)
Quarter: 2010Q3

REPORT INFORMATION
  Report Type: 
  Country: None (occurrence: None)
  Receive Date: 20100727
  Receipt Date: 20100219
  Transmission Date: 20110219
  Serious: No
  Sender: FDA-Public Use
  Company Number: US-ABBOTT-10P-163-0628474-00

PATIENT
  Sex: Female
  Weight: 59.02 kg

DRUGS (3)
  1. SYNTHROID [Suspect]
     Indication: PRODUCT USED FOR UNKNOWN INDICATION
     Route: 048
     Dates: start: 20090301, end: 20090701
  2. SYNTHROID [Suspect]
     Dates: start: 20080101, end: 20090301
  3. SYNTHROID [Suspect]
     Dates: start: 20090701

REACTIONS (4)
  - ABDOMINAL DISTENSION [None]
  - LETHARGY [None]
  - OVERDOSE [None]
  - OVERWEIGHT [None]
